FAERS Safety Report 12373824 (Version 1)
Quarter: 2016Q2

REPORT INFORMATION
  Report Type: Other
  Country: DE (occurrence: DE)
  Receive Date: 20160517
  Receipt Date: 20160517
  Transmission Date: 20160815
  Serious: Yes (Hospitalization, Other)
  Sender: FDA-Public Use
  Company Number: DE-LUPIN PHARMACEUTICALS INC.-2015-02964

PATIENT
  Age: 64 Year
  Sex: Female

DRUGS (7)
  1. LITHIUM. [Suspect]
     Active Substance: LITHIUM
     Route: 065
  2. CLOMIPRAMINE [Suspect]
     Active Substance: CLOMIPRAMINE
     Indication: BIPOLAR DISORDER
     Route: 065
  3. QUETIAPINE. [Suspect]
     Active Substance: QUETIAPINE
     Indication: BIPOLAR DISORDER
     Route: 065
  4. LITHIUM. [Suspect]
     Active Substance: LITHIUM
     Indication: BIPOLAR DISORDER
     Route: 065
  5. QUETIAPINE. [Suspect]
     Active Substance: QUETIAPINE
     Indication: DEPRESSION
  6. QUETIAPINE. [Suspect]
     Active Substance: QUETIAPINE
     Indication: MANIA
  7. CLOMIPRAMINE [Suspect]
     Active Substance: CLOMIPRAMINE
     Route: 065

REACTIONS (1)
  - Delirium [Recovering/Resolving]
